FAERS Safety Report 8795124 (Version 1)
Quarter: 2012Q4

REPORT INFORMATION
  Report Type: 
  Country: VE (occurrence: VE)
  Receive Date: 20120918
  Receipt Date: 20120918
  Transmission Date: 20130627
  Serious: Yes (Other)
  Sender: FDA-Public Use
  Company Number: VE-ROCHE-1130259

PATIENT
  Age: 62 Year
  Sex: Female
  Weight: 76 kg

DRUGS (2)
  1. XELODA [Suspect]
     Indication: BREAST CANCER
     Route: 048
     Dates: start: 20120301, end: 20120901
  2. BEVACIZUMAB [Concomitant]
     Indication: BREAST CANCER
     Route: 041
     Dates: start: 20120301, end: 20120901

REACTIONS (4)
  - Disease progression [Unknown]
  - Rash [Not Recovered/Not Resolved]
  - Palmar-plantar erythrodysaesthesia syndrome [Not Recovered/Not Resolved]
  - Onycholysis [Not Recovered/Not Resolved]
